FAERS Safety Report 8072290-8 (Version None)
Quarter: 2012Q1

REPORT INFORMATION
  Report Type: 
  Country: None (occurrence: None)
  Receive Date: 20120126
  Receipt Date: 20120118
  Transmission Date: 20120608
  Serious: Yes (Hospitalization, Other)
  Sender: FDA-Public Use
  Company Number: JP-ASTELLAS-2011JP009487

PATIENT
  Sex: Male
  Weight: 52 kg

DRUGS (17)
  1. SALAGEN [Concomitant]
     Indication: SJOGREN'S SYNDROME
     Dosage: 5 MG, BID
     Route: 048
     Dates: start: 20091201
  2. RABEPRAZOLE SODIUM [Concomitant]
     Dosage: 10 MG, UID/QD
     Route: 048
     Dates: start: 20091201
  3. AZULFIDINE [Concomitant]
     Indication: RHEUMATOID ARTHRITIS
     Dosage: 500 MG, BID
     Route: 048
     Dates: start: 20090901
  4. AZULFIDINE [Concomitant]
     Indication: INTERSTITIAL LUNG DISEASE
  5. OLMESARTAN MEDOXOMIL [Concomitant]
     Indication: HYPERTENSION
     Dosage: 20 MG, UID/QD
     Route: 048
  6. VOLTAREN [Concomitant]
     Indication: RHEUMATOID ARTHRITIS
     Dosage: 37.5 MG, BID
     Route: 048
     Dates: start: 20091001
  7. ONEALFA [Concomitant]
     Dosage: 0.5 UG, UID/QD
     Route: 048
     Dates: start: 20091201
  8. PREDNISOLONE [Suspect]
     Indication: RHEUMATOID ARTHRITIS
     Dosage: UNK
     Route: 048
     Dates: start: 20090901, end: 20090901
  9. ZETIA [Concomitant]
     Indication: HYPERLIPIDAEMIA
     Dosage: 10 MG, UID/QD
     Route: 048
  10. ROHYPNOL [Concomitant]
     Indication: INSOMNIA
     Dosage: 1 MG, UID/QD
     Route: 048
     Dates: start: 20091201
  11. PROCYLIN [Concomitant]
     Indication: LUMBAR SPINAL STENOSIS
     Dosage: 20 UG, TID
     Route: 048
     Dates: start: 20100901
  12. PROGRAF [Suspect]
     Indication: RHEUMATOID ARTHRITIS
     Dosage: 2 MG, UID/QD
     Route: 048
     Dates: start: 20100401
  13. PREDNISOLONE [Suspect]
     Indication: POLYMYALGIA RHEUMATICA
     Dosage: 15 MG, UNKNOWN/D
     Route: 048
     Dates: start: 20090801
  14. PREDNISOLONE [Suspect]
     Indication: INTERSTITIAL LUNG DISEASE
     Dosage: 5 MG, BID
     Route: 048
     Dates: start: 20090901
  15. METHOTREXATE [Suspect]
     Route: 065
  16. METHYCOBAL [Concomitant]
     Indication: LUMBAR SPINAL STENOSIS
     Dosage: 500 UG, TID
     Route: 048
     Dates: start: 20100901
  17. ENBREL [Suspect]
     Indication: RHEUMATOID ARTHRITIS
     Dosage: UNK
     Route: 058
     Dates: start: 20100501

REACTIONS (5)
  - PORTAL VEIN THROMBOSIS [None]
  - ESCHERICHIA SEPSIS [None]
  - HERPES ZOSTER [None]
  - BILOMA [None]
  - DISSEMINATED INTRAVASCULAR COAGULATION [None]
